FAERS Safety Report 17898002 (Version 1)
Quarter: 2020Q2

REPORT INFORMATION
  Report Type: Spontaneous
  Country: IT (occurrence: IT)
  Receive Date: 20200615
  Receipt Date: 20200615
  Transmission Date: 20200714
  Serious: Yes (Hospitalization)
  Sender: FDA-Public Use
  Company Number: IT-MYLANLABS-2020M1056531

PATIENT
  Age: 64 Year
  Sex: Male

DRUGS (6)
  1. OXALIPLATIN. [Suspect]
     Active Substance: OXALIPLATIN
     Indication: COLORECTAL CANCER STAGE III
     Dosage: DILUTED IN 5% GLUCOSE 500ML  (PVI); RECEIVED TOTAL 8 CYCLES OF CHEMOTHERAPY
     Route: 042
     Dates: start: 20160104
  2. ONDANSETRON [Concomitant]
     Active Substance: ONDANSETRON
     Indication: PRODUCT USED FOR UNKNOWN INDICATION
     Dosage: 8 MG, DILUTED IN 5% GLUCOSE 100ML  (PVI)
     Route: 042
     Dates: start: 20160104
  3. CAPECITABINE. [Suspect]
     Active Substance: CAPECITABINE
     Indication: COLORECTAL CANCER STAGE III
     Dosage: RECEIVED TOTAL 8 CYCLES OF CHEMOTHERAPY
     Route: 065
     Dates: start: 20160104
  4. GLUCOSE [Suspect]
     Active Substance: DEXTROSE
     Dosage: 100ML PERIPHERAL VASCULAR INTERVENTION (WASH)
     Route: 042
     Dates: start: 20160104
  5. DEXAMETHASONE. [Concomitant]
     Active Substance: DEXAMETHASONE
     Indication: PRODUCT USED FOR UNKNOWN INDICATION
     Dosage: 8 MG, DILUTED IN 5% GLUCOSE 100ML  (PVI)
     Route: 065
     Dates: start: 20160104
  6. GLUCOSE [Suspect]
     Active Substance: DEXTROSE
     Indication: DRUG THERAPY
     Dosage: 500ML PERIPHERAL VASCULAR INTERVENTION (OXALIPLATIN DILUTED IN 5% GLUCOSE 500ML PVI)
     Route: 042
     Dates: start: 20160104

REACTIONS (6)
  - Blood calcium decreased [Recovered/Resolved]
  - Aphonia [Recovered/Resolved]
  - Dyspnoea [Recovered/Resolved]
  - Hypokalaemia [Recovered/Resolved]
  - Peripheral sensorimotor neuropathy [Recovered/Resolved]
  - Diarrhoea [Recovered/Resolved]

NARRATIVE: CASE EVENT DATE: 2016
